FAERS Safety Report 15550437 (Version 12)
Quarter: 2021Q1

REPORT INFORMATION
  Report Type: Spontaneous
  Country: US (occurrence: US)
  Receive Date: 20181025
  Receipt Date: 20210303
  Transmission Date: 20210419
  Serious: No
  Sender: FDA-Public Use
  Company Number: US-PFIZER INC-2018430584

PATIENT
  Age: 84 Year
  Sex: Female
  Weight: 69 kg

DRUGS (4)
  1. PREMARIN [Suspect]
     Active Substance: ESTROGENS, CONJUGATED
     Indication: DYSURIA
     Dosage: 1 G, 2X/WEEK AT BEDTIME
  2. PREMARIN [Suspect]
     Active Substance: ESTROGENS, CONJUGATED
     Indication: VULVOVAGINAL DRYNESS
  3. PREMARIN [Suspect]
     Active Substance: ESTROGENS, CONJUGATED
     Indication: ATROPHIC VULVOVAGINITIS
     Dosage: UNK, 2X/WEEK  (0.5 ON THE TUBE; SHE SCREWS THE ADAPTOR ON AND PRESSES UP TO 0.5)
     Route: 067
     Dates: start: 2016
  4. PREMARIN [Suspect]
     Active Substance: ESTROGENS, CONJUGATED
     Indication: URINARY TRACT INFECTION

REACTIONS (7)
  - Feeling abnormal [Unknown]
  - Body height decreased [Unknown]
  - Intentional product misuse [Unknown]
  - Memory impairment [Unknown]
  - Osteoporosis [Unknown]
  - Nervousness [Unknown]
  - Off label use [Unknown]

NARRATIVE: CASE EVENT DATE: 2017
